FAERS Safety Report 7548495-9 (Version None)
Quarter: 2011Q2

REPORT INFORMATION
  Report Type: 
  Country: None (occurrence: None)
  Receive Date: 20110615
  Receipt Date: 20110118
  Transmission Date: 20111010
  Serious: Yes (Hospitalization, Other)
  Sender: FDA-Public Use
  Company Number: MN-BAYER-201039290NA

PATIENT
  Age: 15 Year
  Sex: Female
  Weight: 71 kg

DRUGS (8)
  1. YASMIN [Suspect]
     Indication: ACNE
     Dosage: UNK
     Dates: start: 20060301, end: 20060901
  2. ZANTAC [Concomitant]
     Indication: PRODUCT USED FOR UNKNOWN INDICATION
     Dosage: UNK UNK, BID
     Dates: start: 20060410
  3. DIFFERIN [Concomitant]
  4. YASMIN [Suspect]
     Indication: OVARIAN CYST
  5. SYNTHROID [Concomitant]
     Indication: HYPOTHYROIDISM
     Dosage: 25 ?G, QD
  6. RETIN-A [Concomitant]
  7. DERMATOLOGICALS [Concomitant]
  8. CLEOCIN HYDROCHLORIDE [Concomitant]

REACTIONS (3)
  - CHOLECYSTECTOMY [None]
  - ABDOMINAL PAIN [None]
  - CHOLECYSTITIS CHRONIC [None]
